FAERS Safety Report 5416580-3 (Version None)
Quarter: 2007Q3

REPORT INFORMATION
  Report Type: 
  Country: None (occurrence: None)
  Receive Date: 20070814
  Receipt Date: 20070814
  Transmission Date: 20080115
  Serious: No
  Sender: FDA-Public Use
  Company Number: None

PATIENT
  Age: 45 Year
  Sex: Female
  Weight: 70 kg

DRUGS (1)
  1. ZOSYN [Suspect]
     Indication: INFECTION
     Dosage: 3.375 GRAMS EVERY 6 HOURS IV
     Route: 042
     Dates: start: 20061222, end: 20070102

REACTIONS (1)
  - PANCYTOPENIA [None]
